FAERS Safety Report 10644036 (Version 4)
Quarter: 2016Q4

REPORT INFORMATION
  Report Type: Spontaneous
  Country: AR (occurrence: AR)
  Receive Date: 20141210
  Receipt Date: 20161227
  Transmission Date: 20170206
  Serious: Yes (Other)
  Sender: FDA-Public Use
  Company Number: AR-PFIZER INC-2014333480

PATIENT
  Age: 59 Year
  Sex: Male

DRUGS (2)
  1. SUTENT [Suspect]
     Active Substance: SUNITINIB MALATE
     Indication: METASTATIC RENAL CELL CARCINOMA
     Dosage: 50 MG, 1X/DAY (4 WEEKS OF TREATMENT AND 2 WEEKS OF REST))
     Dates: start: 20110601
  2. LEVOTYROXIN NYCOMED [Concomitant]
     Dosage: UNK
     Dates: start: 201408

REACTIONS (6)
  - Aphonia [Not Recovered/Not Resolved]
  - Neoplasm progression [Not Recovered/Not Resolved]
  - Intestinal polyp [Recovered/Resolved]
  - Haemorrhoids [Recovered/Resolved]
  - Intestinal haemorrhage [Recovered/Resolved]
  - Haematochezia [Recovered/Resolved]

NARRATIVE: CASE EVENT DATE: 2012
